FAERS Safety Report 21450748 (Version 2)
Quarter: 2022Q4

REPORT INFORMATION
  Report Type: Report from Study
  Country: US (occurrence: US)
  Receive Date: 20221013
  Receipt Date: 20221122
  Transmission Date: 20230113
  Serious: No
  Sender: FDA-Public Use
  Company Number: US-ABBVIE-22K-163-4360813-00

PATIENT
  Age: 66 Year
  Sex: Female

DRUGS (1)
  1. HUMIRA [Suspect]
     Active Substance: ADALIMUMAB
     Indication: Rheumatoid arthritis
     Dosage: CITRATE FREE, FORM STRENGTH 40 MILLIGRAM
     Route: 058

REACTIONS (12)
  - Bedridden [Unknown]
  - Dry skin [Unknown]
  - Tooth loss [Unknown]
  - Skin disorder [Unknown]
  - Joint stiffness [Unknown]
  - Skin exfoliation [Unknown]
  - Arthralgia [Unknown]
  - Rash [Unknown]
  - Alopecia [Unknown]
  - Peripheral swelling [Unknown]
  - Swelling [Unknown]
  - Bone loss [Unknown]

NARRATIVE: CASE EVENT DATE: 20220309
